FAERS Safety Report 10258550 (Version 1)
Quarter: 2014Q2

REPORT INFORMATION
  Report Type: Report from Study
  Country: BR (occurrence: BR)
  Receive Date: 20140625
  Receipt Date: 20140625
  Transmission Date: 20141212
  Serious: Yes (Other)
  Sender: FDA-Public Use
  Company Number: PHHY2014BR078403

PATIENT
  Age: 70 Year
  Sex: Female
  Weight: 66 kg

DRUGS (5)
  1. ACLASTA [Suspect]
     Indication: OSTEOPENIA
     Dosage: UNK UKN, ONCE PER YEAR
     Route: 042
     Dates: start: 20130326
  2. VYTORIN [Concomitant]
     Indication: BLOOD CHOLESTEROL ABNORMAL
     Dosage: 1 DF, DAILY
     Route: 048
  3. SYNTHROID [Concomitant]
     Indication: THYROID DISORDER
     Dosage: 1 DF, DAILY
     Route: 048
  4. CALCIUM + D3                       /00944201/ [Concomitant]
     Indication: BLOOD CALCIUM ABNORMAL
     Dosage: 1 DF, DAILY
     Route: 048
     Dates: start: 2013
  5. DEPURA [Concomitant]
     Indication: BLOOD CALCIUM ABNORMAL
     Dosage: 10 DRP, UNK
     Route: 048

REACTIONS (3)
  - Spinal fracture [Recovered/Resolved]
  - Insomnia [Recovered/Resolved]
  - Back pain [Recovered/Resolved]
